FAERS Safety Report 10335142 (Version 6)
Quarter: 2015Q1

REPORT INFORMATION
  Report Type: Report from Study
  Country: ES (occurrence: ES)
  Receive Date: 20140723
  Receipt Date: 20150128
  Transmission Date: 20150720
  Serious: Yes (Hospitalization)
  Sender: FDA-Public Use
  Company Number: ES-009507513-1405ESP005394

PATIENT
  Age: 59 Year
  Sex: Male
  Weight: 106 kg

DRUGS (7)
  1. LYRICA [Concomitant]
     Active Substance: PREGABALIN
     Indication: PAIN
     Dosage: 75 MG, QD, PILL
     Route: 002
     Dates: start: 201309
  2. ZALDIAR [Concomitant]
     Active Substance: ACETAMINOPHEN\TRAMADOL HYDROCHLORIDE
     Indication: PAIN
     Dosage: 325 MG, QD, PILL
     Route: 002
     Dates: start: 20140425, end: 20140528
  3. OMEPRAZOLE. [Concomitant]
     Active Substance: OMEPRAZOLE
     Indication: PROPHYLAXIS AGAINST GASTROINTESTINAL ULCER
     Dosage: 20 MG, QD, PILL
     Route: 002
     Dates: start: 201312
  4. PEMBROLIZUMAB. [Suspect]
     Active Substance: PEMBROLIZUMAB
     Indication: NON-SMALL CELL LUNG CANCER
     Dosage: 2 MG/KG, Q3W,  (DOSE ALSO REPORTED AS 50 UNITS NOT PROVIDED)
     Route: 042
     Dates: start: 20140410, end: 20140430
  5. SIMVASTATIN. [Concomitant]
     Active Substance: SIMVASTATIN
     Indication: DYSLIPIDAEMIA
     Dosage: 10 MG, QD
     Route: 048
     Dates: start: 20140330, end: 20140506
  6. TRYPTIZOL [Concomitant]
     Active Substance: AMITRIPTYLINE HYDROCHLORIDE
     Indication: PAIN
     Dosage: 25 MG, QD, PILL
     Route: 002
     Dates: start: 201309, end: 20140506
  7. ASTUDAL [Concomitant]
     Indication: HYPERTENSION
     Dosage: 5 MG, QD
     Route: 048
     Dates: start: 20140330

REACTIONS (1)
  - Muscle necrosis [Recovered/Resolved]

NARRATIVE: CASE EVENT DATE: 20140502
